FAERS Safety Report 4449626-X (Version None)
Quarter: 2004Q3

REPORT INFORMATION
  Report Type: 
  Country: None (occurrence: None)
  Receive Date: 20040913
  Receipt Date: 20040902
  Transmission Date: 20050211
  Serious: Yes (Hospitalization, Other)
  Sender: FDA-Public Use
  Company Number: 2004-04-1739

PATIENT
  Age: 54 Year
  Sex: Male
  Weight: 78 kg

DRUGS (3)
  1. PEG-INTRON [Suspect]
     Indication: MYELOFIBROSIS
     Dosage: 50 MCG QD SUBCUTANEOUS
     Route: 058
     Dates: start: 20030601, end: 20040301
  2. INSULIN SEMILENTE [Concomitant]
  3. VERAPAMIL [Concomitant]

REACTIONS (6)
  - ANAEMIA [None]
  - GASTRITIS [None]
  - METASTASES TO SPINE [None]
  - PLASMACYTOMA [None]
  - SPINAL CORD DISORDER [None]
  - THROMBOCYTOPENIA [None]
